FAERS Safety Report 7654557-8 (Version None)
Quarter: 2011Q3

REPORT INFORMATION
  Report Type: 
  Country: None (occurrence: None)
  Receive Date: 20110803
  Receipt Date: 20110726
  Transmission Date: 20111222
  Serious: Yes (Other)
  Sender: FDA-Public Use
  Company Number: US-MERCK-1107USA03664

PATIENT
  Sex: Female

DRUGS (5)
  1. FOSAMAX [Suspect]
     Route: 048
  2. CLARITHROMYCIN [Suspect]
     Indication: LUNG INFECTION
     Route: 065
  3. BONIVA [Suspect]
     Route: 065
  4. ESTROGENS, CONJUGATED AND MEDROXYPROGESTERONE ACETATE [Concomitant]
     Route: 065
  5. LYRICA [Suspect]
     Indication: RESTLESS LEGS SYNDROME
     Dosage: ON AND OFF FOR 2 YEARS
     Route: 065

REACTIONS (6)
  - BLOOD PRESSURE DECREASED [None]
  - DYSPNOEA [None]
  - DRUG DOSE OMISSION [None]
  - PULMONARY HAEMORRHAGE [None]
  - MALAISE [None]
  - LUNG INFECTION [None]
